FAERS Safety Report 9187484 (Version 1)
Quarter: 2013Q1

REPORT INFORMATION
  Report Type: Spontaneous
  Country: US (occurrence: US)
  Receive Date: 20130325
  Receipt Date: 20130325
  Transmission Date: 20140127
  Serious: No
  Sender: FDA-Public Use
  Company Number: US-BAYER-2013-030682

PATIENT
  Sex: Female

DRUGS (2)
  1. CLIMARA [Suspect]
     Dosage: 0.025 MG, UNK
     Dates: start: 201209
  2. CLIMARA [Suspect]
     Dosage: 0.037 MG, UNK
     Route: 062

REACTIONS (2)
  - Malaise [None]
  - Incorrect dose administered [None]
